FAERS Safety Report 7645110-0 (Version None)
Quarter: 2011Q3

REPORT INFORMATION
  Report Type: 
  Country: None (occurrence: None)
  Receive Date: 20110729
  Receipt Date: 20110727
  Transmission Date: 20111222
  Serious: Yes (Death)
  Sender: FDA-Public Use
  Company Number: PHHY2010NL81992

PATIENT
  Sex: Female
  Weight: 63 kg

DRUGS (1)
  1. ZOMETA [Suspect]
     Indication: BREAST CANCER METASTATIC
     Dosage: 4 MG/ 5 ML WITH NACL 0.9% 100ML BAG

REACTIONS (3)
  - NEOPLASM PROGRESSION [None]
  - METASTASES TO MENINGES [None]
  - NEOPLASM MALIGNANT [None]
